FAERS Safety Report 18700068 (Version 2)
Quarter: 2021Q1

REPORT INFORMATION
  Report Type: Spontaneous
  Country: FR (occurrence: FR)
  Receive Date: 20210105
  Receipt Date: 20210122
  Transmission Date: 20210419
  Serious: Yes (Other)
  Sender: FDA-Public Use
  Company Number: NVSC2020FR300412

PATIENT
  Sex: Male

DRUGS (5)
  1. LOXEN [Concomitant]
     Indication: HYPERTENSION
     Dosage: UNK, 20 LP
     Route: 048
     Dates: start: 20200618
  2. APROVEL [Concomitant]
     Active Substance: IRBESARTAN
     Indication: HYPERTENSION
     Dosage: UNK (150)
     Route: 048
     Dates: start: 20201018
  3. GILENYA [Suspect]
     Active Substance: FINGOLIMOD HYDROCHLORIDE
     Indication: MULTIPLE SCLEROSIS
     Dosage: 1 DF
     Route: 065
  4. GILENYA [Suspect]
     Active Substance: FINGOLIMOD HYDROCHLORIDE
     Dosage: 1 DF, QD
     Route: 048
     Dates: start: 20200618, end: 20201106
  5. IRBESARTAN. [Concomitant]
     Active Substance: IRBESARTAN
     Indication: HYPERTENSION
     Dosage: UNK
     Route: 048
     Dates: start: 20201018

REACTIONS (9)
  - Myalgia [Recovered/Resolved with Sequelae]
  - Anosmia [Recovered/Resolved with Sequelae]
  - COVID-19 [Unknown]
  - Pyrexia [Recovered/Resolved with Sequelae]
  - Headache [Recovered/Resolved with Sequelae]
  - Hepatocellular injury [Unknown]
  - Fatigue [Recovered/Resolved with Sequelae]
  - Ageusia [Recovered/Resolved with Sequelae]
  - Cough [Recovered/Resolved with Sequelae]

NARRATIVE: CASE EVENT DATE: 20201025
